FAERS Safety Report 18550255 (Version 1)
Quarter: 2020Q4

REPORT INFORMATION
  Report Type: Spontaneous
  Country: CA (occurrence: CA)
  Receive Date: 20201126
  Receipt Date: 20201126
  Transmission Date: 20210114
  Serious: Yes (Hospitalization)
  Sender: FDA-Public Use
  Company Number: CA-TEVA-2020-CA-1851524

PATIENT
  Sex: Female

DRUGS (2)
  1. 5-AMINOSALICYLIC ACID [Suspect]
     Active Substance: MESALAMINE
     Route: 065
  2. PREDNISONE. [Suspect]
     Active Substance: PREDNISONE
     Dosage: 40MG FOR 2 WEEKS THEN TAPER
     Route: 048

REACTIONS (4)
  - Drug resistance [Unknown]
  - Drug intolerance [Unknown]
  - Colitis [Not Recovered/Not Resolved]
  - Loss of therapeutic response [Unknown]
